FAERS Safety Report 8944943 (Version 1)
Quarter: 2012Q4

REPORT INFORMATION
  Report Type: 
  Country: US (occurrence: US)
  Receive Date: 20121204
  Receipt Date: 20121204
  Transmission Date: 20130627
  Serious: No
  Sender: FDA-Public Use
  Company Number: US-AMGEN-USASP2012060603

PATIENT
  Age: 61 Year
  Sex: Male

DRUGS (1)
  1. ENBREL [Suspect]
     Indication: RHEUMATOID ARTHRITIS
     Dosage: UNK UNK, every other week
     Dates: start: 20111109

REACTIONS (4)
  - Erythema [Not Recovered/Not Resolved]
  - Rash vesicular [Not Recovered/Not Resolved]
  - Induration [Not Recovered/Not Resolved]
  - Rheumatoid arthritis [Recovered/Resolved]
